FAERS Safety Report 18502527 (Version 3)
Quarter: 2020Q4

REPORT INFORMATION
  Report Type: Report from Study
  Country: US (occurrence: US)
  Receive Date: 20201113
  Receipt Date: 20201220
  Transmission Date: 20210114
  Serious: Yes (Hospitalization)
  Sender: FDA-Public Use
  Company Number: US-JNJFOC-20201114214

PATIENT
  Age: 38 Week
  Sex: Male
  Weight: 3.9 kg

DRUGS (10)
  1. CISAPRIDE [Suspect]
     Active Substance: CISAPRIDE
     Indication: GASTROINTESTINAL MOTILITY DISORDER
     Dosage: PRESCRIBED 0.4 ML QID BUT STARTED TAKING IT AT 0.4 ML TID AS PER INVESTIGATOR^S INSTRUCTIONS.
     Route: 065
  2. OMEPRAZOLE. [Concomitant]
     Active Substance: OMEPRAZOLE
     Indication: VOMITING
     Route: 065
     Dates: start: 20200927
  3. VITAMIN A                          /00056001/ [Concomitant]
     Active Substance: RETINOL
     Indication: VITAMIN A DEFICIENCY
     Route: 065
     Dates: start: 20200826, end: 20200904
  4. CISAPRIDE [Suspect]
     Active Substance: CISAPRIDE
     Indication: GASTROOESOPHAGEAL REFLUX DISEASE
  5. HEPARIN [Concomitant]
     Active Substance: HEPARIN SODIUM
     Indication: FLUSHING
     Route: 065
     Dates: start: 20200728
  6. TRIAMCINOLONE [Concomitant]
     Active Substance: TRIAMCINOLONE
     Indication: MEDICAL DEVICE SITE RASH
     Route: 065
     Dates: start: 20200914, end: 20200924
  7. SIMETHICONE (DIMETHICONE) [Concomitant]
     Active Substance: DIMETHICONE
     Route: 065
  8. NORMAL SALINE [Concomitant]
     Active Substance: SODIUM CHLORIDE
     Indication: CATHETER MANAGEMENT
     Route: 065
     Dates: start: 20200728
  9. ACETAMINOPHEN. [Concomitant]
     Active Substance: ACETAMINOPHEN
     Indication: PYREXIA
     Route: 065
     Dates: start: 20201009, end: 20201019
  10. BACITRACIN. [Concomitant]
     Active Substance: BACITRACIN
     Indication: MEDICAL DEVICE SITE RASH
     Route: 065
     Dates: start: 20200915, end: 20201021

REACTIONS (2)
  - Enterococcal infection [Recovered/Resolved]
  - Feeding intolerance [Recovered/Resolved]

NARRATIVE: CASE EVENT DATE: 20200728
